FAERS Safety Report 9699004 (Version 1)
Quarter: 2013Q4

REPORT INFORMATION
  Report Type: Spontaneous
  Country: US (occurrence: None)
  Receive Date: 20131118
  Receipt Date: 20131118
  Transmission Date: 20140711
  Serious: Yes (Hospitalization)
  Sender: FDA-Public Use
  Company Number: IND1-US-2013-0054

PATIENT
  Age: 54 Year
  Sex: Female

DRUGS (2)
  1. INDOMETHACIN [Suspect]
     Indication: PRODUCT USED FOR UNKNOWN INDICATION
  2. COLCHICINE [Suspect]
     Indication: PRODUCT USED FOR UNKNOWN INDICATION

REACTIONS (11)
  - Respiratory rate decreased [None]
  - Periorbital oedema [None]
  - Oedema peripheral [None]
  - Haemoglobin decreased [None]
  - Respiratory distress [None]
  - Blood urea increased [None]
  - Blood creatinine increased [None]
  - Blood potassium increased [None]
  - International normalised ratio decreased [None]
  - Drug screen positive [None]
  - Myxoedema coma [None]
